FAERS Safety Report 23319545 (Version 1)
Quarter: 2023Q4

REPORT INFORMATION
  Report Type: Spontaneous
  Country: US (occurrence: US)
  Receive Date: 20231220
  Receipt Date: 20231220
  Transmission Date: 20240109
  Serious: No
  Sender: FDA-Public Use
  Company Number: US-Accord-384537

PATIENT
  Sex: Male

DRUGS (1)
  1. BUPROPION HYDROCHLORIDE [Suspect]
     Active Substance: BUPROPION HYDROCHLORIDE
     Indication: Product used for unknown indication
     Dosage: EXTENDED-RELEASE TABLETS?EVERY MORNING
     Route: 048
     Dates: start: 2023

REACTIONS (3)
  - Product odour abnormal [Unknown]
  - Urine odour abnormal [Unknown]
  - Skin odour abnormal [Unknown]

NARRATIVE: CASE EVENT DATE: 20230101
